FAERS Safety Report 7154090-6 (Version None)
Quarter: 2010Q4

REPORT INFORMATION
  Report Type: 
  Country: None (occurrence: None)
  Receive Date: 20101124
  Receipt Date: 20101117
  Transmission Date: 20110411
  Serious: Yes (Other)
  Sender: FDA-Public Use
  Company Number: 2010MA004696

PATIENT
  Age: 41 Year
  Sex: Male

DRUGS (3)
  1. TRAMADOL HYDROCHLORIDE [Suspect]
     Indication: PAIN
     Dosage: 50 MG;PO
     Route: 048
     Dates: end: 20101001
  2. CON MEDS [Concomitant]
  3. PREV MEDS [Concomitant]

REACTIONS (5)
  - APHAGIA [None]
  - CONFUSIONAL STATE [None]
  - NAUSEA [None]
  - NERVOUS SYSTEM DISORDER [None]
  - PRODUCT SUBSTITUTION ISSUE [None]
